FAERS Safety Report 24884447 (Version 1)
Quarter: 2025Q1

REPORT INFORMATION
  Report Type: Spontaneous
  Country: US (occurrence: US)
  Receive Date: 20250124
  Receipt Date: 20250124
  Transmission Date: 20250409
  Serious: Yes (Other)
  Sender: BOEHRINGER INGELHEIM
  Company Number: US-BoehringerIngelheim-2025-BI-003514

PATIENT
  Age: 79 Year
  Sex: Male
  Weight: 51.00 kg

DRUGS (15)
  1. NINTEDANIB [Suspect]
     Active Substance: NINTEDANIB
     Indication: Idiopathic pulmonary fibrosis
     Dosage: MEDICATION STARTED PRIOR TO INFORMED CONSENT AND IS STILL ONGOING* DOSE FREQUENCY: BID* DOSE: 100 MG
  2. NINTEDANIB [Suspect]
     Active Substance: NINTEDANIB
  3. NERANDOMILAST [Concomitant]
     Active Substance: NERANDOMILAST
     Indication: Idiopathic pulmonary fibrosis
  4. LEVOTHYROXINE [Concomitant]
     Active Substance: LEVOTHYROXINE
     Indication: Hypothyroidism
  5. MELOXICAM [Concomitant]
     Active Substance: MELOXICAM
     Indication: Arthralgia
  6. ROSUVASTATIN [Concomitant]
     Active Substance: ROSUVASTATIN
     Indication: Hyperlipidaemia
  7. TAMSULOSIN [Concomitant]
     Active Substance: TAMSULOSIN
     Indication: Benign prostatic hyperplasia
  8. MAGNESIUM [Concomitant]
     Active Substance: MAGNESIUM
     Indication: Prophylaxis
  9. AMITRIPTYLINE [Concomitant]
     Active Substance: AMITRIPTYLINE
     Indication: Gastrooesophageal reflux disease
  10. OXYGEN [Concomitant]
     Active Substance: OXYGEN
     Indication: Idiopathic pulmonary fibrosis
  11. IMODIUM AD [Concomitant]
     Active Substance: LOPERAMIDE HYDROCHLORIDE
     Indication: Diarrhoea
  12. FLOMAX [Concomitant]
     Active Substance: TAMSULOSIN HYDROCHLORIDE
     Indication: Benign prostatic hyperplasia
  13. Morphine concentrate [Concomitant]
     Indication: Idiopathic pulmonary fibrosis
  14. TYVASO [Concomitant]
     Active Substance: TREPROSTINIL
     Indication: Pulmonary hypertension
  15. ALPRAZOLAM [Concomitant]
     Active Substance: ALPRAZOLAM
     Indication: Anxiety

REACTIONS (1)
  - Drug-induced liver injury [Not Recovered/Not Resolved]

NARRATIVE: CASE EVENT DATE: 20241119
